FAERS Safety Report 10230039 (Version 3)
Quarter: 2014Q4

REPORT INFORMATION
  Report Type: Spontaneous
  Country: IT (occurrence: IT)
  Receive Date: 20140611
  Receipt Date: 20141006
  Transmission Date: 20150528
  Serious: Yes (Hospitalization)
  Sender: FDA-Public Use
  Company Number: IT-ABBVIE-14P-083-1246044-00

PATIENT
  Age: 39 Year
  Sex: Female

DRUGS (4)
  1. VALDORM [Suspect]
     Active Substance: VALERIAN
     Indication: SUICIDE ATTEMPT
     Dosage: 7 DOSAGE FORM TOTAL
     Route: 048
     Dates: start: 20131218, end: 20131218
  2. MINIAS [Suspect]
     Active Substance: LORMETAZEPAM
     Indication: SUICIDE ATTEMPT
     Dosage: 6 DOSAGE FORM TOTAL
     Route: 048
     Dates: start: 20131218, end: 20131218
  3. EN [Suspect]
     Active Substance: DELORAZEPAM
     Indication: SUICIDE ATTEMPT
     Dosage: 6 DOSAGE FORM TOTAL
     Route: 048
     Dates: start: 20131218, end: 20131218
  4. DEPAKIN [Suspect]
     Active Substance: VALPROATE SODIUM
     Indication: SUICIDE ATTEMPT
     Route: 048
     Dates: start: 20131218, end: 20131218

REACTIONS (4)
  - Bradyphrenia [Recovered/Resolved]
  - Sopor [Recovered/Resolved]
  - Bradykinesia [Recovered/Resolved]
  - Drug abuse [Recovered/Resolved]

NARRATIVE: CASE EVENT DATE: 20131218
